FAERS Safety Report 9980468 (Version 9)
Quarter: 2015Q1

REPORT INFORMATION
  Report Type: Report from Study
  Country: GB (occurrence: GB)
  Receive Date: 20140307
  Receipt Date: 20150331
  Transmission Date: 20150721
  Serious: Yes (Hospitalization, Disabling)
  Sender: FDA-Public Use
  Company Number: GB-MERCK-1402GBR009120

PATIENT
  Age: 61 Year
  Sex: Male
  Weight: 78.2 kg

DRUGS (6)
  1. LENALIDOMIDE [Suspect]
     Active Substance: LENALIDOMIDE
     Dosage: 10 MG, DAY 1-21
     Route: 048
     Dates: start: 20140109
  2. DEXAMETHASONE. [Suspect]
     Active Substance: DEXAMETHASONE
     Indication: PLASMA CELL MYELOMA
     Dosage: 40 MG, DAY 1-4, 12-15
     Route: 048
     Dates: start: 20120608
  3. BORTEZOMIB [Suspect]
     Active Substance: BORTEZOMIB
     Indication: PLASMA CELL MYELOMA
     Dosage: 2.6 MG/M2, DAY 1, 4, 8, 11
     Route: 042
     Dates: start: 20121220
  4. LENALIDOMIDE [Suspect]
     Active Substance: LENALIDOMIDE
     Indication: PLASMA CELL MYELOMA
     Dosage: 25 MG, ON DAYS 7-21
     Route: 048
     Dates: start: 20120608, end: 20140212
  5. VORINOSTAT [Suspect]
     Active Substance: VORINOSTAT
     Indication: PLASMA CELL MYELOMA
     Dosage: 300 MG, DAY 1-7, DAY 15-21
     Route: 048
     Dates: start: 20140109, end: 20140212
  6. CYCLOPHOSPHAMIDE. [Suspect]
     Active Substance: CYCLOPHOSPHAMIDE
     Indication: PLASMA CELL MYELOMA
     Dosage: 500 MG, DAY 1, 7, 8
     Route: 048
     Dates: start: 20120608

REACTIONS (2)
  - Melanocytic naevus [Recovered/Resolved]
  - Herpes zoster [Recovered/Resolved with Sequelae]

NARRATIVE: CASE EVENT DATE: 20140201
